FAERS Safety Report 4829156-3 (Version None)
Quarter: 2005Q4

REPORT INFORMATION
  Report Type: 
  Country: None (occurrence: None)
  Receive Date: 20051027
  Receipt Date: 20050214
  Transmission Date: 20060501
  Serious: Yes (Hospitalization)
  Sender: FDA-Public Use
  Company Number: USA-2005-0018864

PATIENT
  Age: 80 Year
  Sex: Female
  Weight: 79.8 kg

DRUGS (8)
  1. SPECTRACEF [Suspect]
     Indication: BRONCHITIS
     Dosage: UNK, BID, UNKNOWN
     Route: 065
  2. LIPITOR [Concomitant]
  3. ASPIRIN [Concomitant]
  4. LASIX [Concomitant]
  5. DILTIAZEM HCL [Concomitant]
  6. MOEXIPRIL HCL [Concomitant]
  7. PLAVIX [Concomitant]
  8. PROCRIT [Concomitant]

REACTIONS (1)
  - CLOSTRIDIUM COLITIS [None]
